FAERS Safety Report 5965780-2 (Version None)
Quarter: 2008Q4

REPORT INFORMATION
  Report Type: 
  Country: None (occurrence: None)
  Receive Date: 20081125
  Receipt Date: 20080731
  Transmission Date: 20090506
  Serious: No
  Sender: FDA-Public Use
  Company Number: US-AMGEN-US298576

PATIENT
  Sex: Female
  Weight: 72.6 kg

DRUGS (2)
  1. VECTIBIX [Suspect]
     Indication: COLORECTAL CANCER
     Route: 042
     Dates: start: 20080629, end: 20080717
  2. XELODA [Concomitant]
     Route: 065

REACTIONS (5)
  - ERYTHEMA OF EYELID [None]
  - EYELID DISORDER [None]
  - EYELID IRRITATION [None]
  - EYELID MARGIN CRUSTING [None]
  - EYELID OEDEMA [None]
